FAERS Safety Report 6400128-0 (Version None)
Quarter: 2009Q4

REPORT INFORMATION
  Report Type: 
  Country: None (occurrence: None)
  Receive Date: 20091014
  Receipt Date: 20091002
  Transmission Date: 20100525
  Serious: Yes (Hospitalization, Other)
  Sender: FDA-Public Use
  Company Number: SE-JNJFOC-20070702240

PATIENT
  Age: 68 Year
  Sex: Female

DRUGS (21)
  1. REMICADE [Suspect]
     Indication: DRUG USE FOR UNKNOWN INDICATION
     Route: 042
     Dates: start: 20060323
  2. PLAVIX [Suspect]
     Indication: DRUG USE FOR UNKNOWN INDICATION
     Route: 048
  3. SERTRALIN [Suspect]
     Indication: DRUG USE FOR UNKNOWN INDICATION
     Route: 048
  4. CALCICHEW D-3 [Concomitant]
  5. EMGESAN [Concomitant]
  6. RAMIPRIL [Concomitant]
     Route: 048
  7. METOPROLOL [Concomitant]
     Route: 048
  8. GABAPENTIN [Concomitant]
     Route: 048
  9. ACETAMINOPHEN [Concomitant]
     Route: 048
  10. MICROLAX [Concomitant]
     Route: 054
  11. STESOLID [Concomitant]
  12. MOLIPECT [Concomitant]
     Route: 048
  13. BISOLVON [Concomitant]
  14. FURIX [Concomitant]
  15. NITROMAX [Concomitant]
     Route: 060
  16. AZATIOPRIN [Concomitant]
  17. LEVOTHYROXINE SODIUM [Concomitant]
  18. DURAGESIC-100 [Concomitant]
     Route: 062
  19. STILNOCT [Concomitant]
  20. SANDIMMUNE [Concomitant]
  21. ENTOCORT EC [Concomitant]

REACTIONS (1)
  - GASTRIC ULCER HAEMORRHAGE [None]
